FAERS Safety Report 9375779 (Version 1)
Quarter: 2013Q2

REPORT INFORMATION
  Report Type: Spontaneous
  Country: US (occurrence: US)
  Receive Date: 20130628
  Receipt Date: 20130628
  Transmission Date: 20140414
  Serious: Yes (Hospitalization, Other)
  Sender: FDA-Public Use
  Company Number: US-BAXTER-2013BAX024098

PATIENT
  Age: 52 Year
  Sex: Female

DRUGS (2)
  1. DIANEAL LOW CALCIUM [Suspect]
     Indication: PERITONEAL DIALYSIS
     Route: 033
  2. VANCOMYCIN [Suspect]
     Indication: VIRAL INFECTION
     Route: 065

REACTIONS (3)
  - Viral infection [Recovering/Resolving]
  - Catheter site infection [Recovering/Resolving]
  - Urticaria [Recovering/Resolving]
